FAERS Safety Report 13775481 (Version 1)
Quarter: 2017Q3

REPORT INFORMATION
  Report Type: Spontaneous
  Country: DE (occurrence: BE)
  Receive Date: 20170721
  Receipt Date: 20170721
  Transmission Date: 20171127
  Serious: Yes (Death)
  Sender: FDA-Public Use
  Company Number: DE-SA-2017SA122840

PATIENT
  Age: 4 Year

DRUGS (3)
  1. OXYGEN/HELIUM [Suspect]
     Active Substance: HELIUM\OXYGEN
     Route: 055
  2. LIDOCAINE. [Suspect]
     Active Substance: LIDOCAINE
     Route: 065
  3. GITTALUN [Suspect]
     Active Substance: DOXYLAMINE SUCCINATE
     Route: 048

REACTIONS (5)
  - Conjunctival haemorrhage [None]
  - Asphyxia [Fatal]
  - Brain oedema [None]
  - Toxicity to various agents [None]
  - Sedation [Fatal]
